FAERS Safety Report 16756016 (Version 3)
Quarter: 2019Q3

REPORT INFORMATION
  Report Type: Spontaneous
  Country: US (occurrence: US)
  Receive Date: 20190829
  Receipt Date: 20190904
  Transmission Date: 20191005
  Serious: Yes (Death, Hospitalization, Congenital Anomaly, Other)
  Sender: FDA-Public Use
  Company Number: US-ABBVIE-19K-163-2904301-00

PATIENT
  Sex: Female

DRUGS (1)
  1. MAVYRET [Suspect]
     Active Substance: GLECAPREVIR\PIBRENTASVIR
     Indication: MATERNAL EXPOSURE TIMING UNSPECIFIED
     Route: 064
     Dates: start: 20171027, end: 20180118

REACTIONS (5)
  - Early infantile epileptic encephalopathy with burst-suppression [Fatal]
  - Foetal non-stress test abnormal [Unknown]
  - Foetal exposure during pregnancy [Unknown]
  - Polyhydramnios [Unknown]
  - Seizure [Unknown]

NARRATIVE: CASE EVENT DATE: 2019
